FAERS Safety Report 17071869 (Version 2)
Quarter: 2019Q4

REPORT INFORMATION
  Report Type: Report from Study
  Country: US (occurrence: US)
  Receive Date: 20191125
  Receipt Date: 20191206
  Transmission Date: 20200122
  Serious: Yes (Hospitalization)
  Sender: FDA-Public Use
  Company Number: US-PFIZER INC-2019501562

PATIENT
  Age: 16 Year
  Sex: Male
  Weight: 64.5 kg

DRUGS (7)
  1. INCB018424 [Suspect]
     Active Substance: RUXOLITINIB
     Indication: ACUTE LYMPHOCYTIC LEUKAEMIA
     Dosage: 85 MG (TABLET), CYCLIC (DI DAY 29-42)
     Route: 048
     Dates: start: 20190918, end: 20191002
  2. CYCLOPHOSPHAMIDE. [Suspect]
     Active Substance: CYCLOPHOSPHAMIDE
     Indication: ACUTE LYMPHOCYTIC LEUKAEMIA
     Dosage: 1692 MG,(DI DAY 29)
     Route: 042
     Dates: start: 20190918, end: 20190918
  3. VINCRISTINE SULFATE. [Suspect]
     Active Substance: VINCRISTINE SULFATE
     Indication: ACUTE LYMPHOCYTIC LEUKAEMIA
     Dosage: 2 MG, CYCLIC (DI DAY 43,50)
     Route: 042
     Dates: start: 20191003, end: 20191010
  4. METHOTREXATE SODIUM. [Suspect]
     Active Substance: METHOTREXATE SODIUM
     Indication: ACUTE LYMPHOCYTIC LEUKAEMIA
     Dosage: 15 MG, CYCLIC (DI DAY 29,36)
     Route: 037
     Dates: start: 20190918, end: 20190926
  5. CYTARABINE. [Suspect]
     Active Substance: CYTARABINE
     Indication: ACUTE LYMPHOCYTIC LEUKAEMIA
     Dosage: 127 MG, CYCLIC (DI DAY 29-32, 36-39)
     Route: 042
     Dates: start: 20190918, end: 20190929
  6. THIOGUANINE [Suspect]
     Active Substance: THIOGUANINE
     Indication: ACUTE LYMPHOCYTIC LEUKAEMIA
     Dosage: 100 MG (TABLET), CYCLIC (DI DAY 29-42)
     Route: 048
     Dates: start: 20190918
  7. PEGASPARGASE [Suspect]
     Active Substance: PEGASPARGASE
     Indication: ACUTE LYMPHOCYTIC LEUKAEMIA
     Dosage: 4125 IU,(DELAYED INTENSIFICATION DAY 43)
     Route: 042
     Dates: start: 20191003, end: 20191003

REACTIONS (1)
  - Sepsis [Recovered/Resolved]

NARRATIVE: CASE EVENT DATE: 20191019
